FAERS Safety Report 7633113-1 (Version None)
Quarter: 2011Q3

REPORT INFORMATION
  Report Type: 
  Country: None (occurrence: None)
  Receive Date: 20110725
  Receipt Date: 20110714
  Transmission Date: 20111222
  Serious: Yes (Other)
  Sender: FDA-Public Use
  Company Number: PHFR2011GB00674

PATIENT
  Sex: Male

DRUGS (3)
  1. SERTRALINE HYDROCHLORIDE [Concomitant]
     Indication: DEPRESSION
     Dosage: 100 MG, UNK
     Route: 048
  2. CLOZAPINE [Suspect]
     Indication: SCHIZOPHRENIA
     Dosage: 600 MG, UNK
     Route: 048
     Dates: start: 19990726
  3. SULPIRIDE [Concomitant]
     Indication: PSYCHOTIC DISORDER
     Dosage: 200 MG
     Route: 048

REACTIONS (8)
  - BALANCE DISORDER [None]
  - HYPERTENSION [None]
  - COUGH [None]
  - DECREASED APPETITE [None]
  - OROPHARYNGEAL PAIN [None]
  - DIABETES MELLITUS [None]
  - VIRAL INFECTION [None]
  - OVERWEIGHT [None]
